FAERS Safety Report 24172947 (Version 1)
Quarter: 2024Q3

REPORT INFORMATION
  Report Type: Spontaneous
  Country: US (occurrence: US)
  Receive Date: 20240805
  Receipt Date: 20240805
  Transmission Date: 20241017
  Serious: Yes (Hospitalization)
  Sender: CHEPLAPHARM
  Company Number: US-ROCHE-10000035043

PATIENT
  Age: 41 Year
  Sex: Female

DRUGS (9)
  1. CLONAZEPAM [Suspect]
     Active Substance: CLONAZEPAM
     Indication: Food allergy
     Dosage: DAILY DOSE: 0.5 MILLIGRAM
     Route: 048
  2. MELATONIN [Concomitant]
     Active Substance: MELATONIN
  3. TRINTELLIX [Concomitant]
     Active Substance: VORTIOXETINE HYDROBROMIDE
  4. BUSPIRONE HCL [Concomitant]
     Active Substance: BUSPIRONE HYDROCHLORIDE
  5. EPINEPHRINE [Concomitant]
     Active Substance: EPINEPHRINE
  6. AUVI-Q [Concomitant]
     Active Substance: EPINEPHRINE
  7. ZYRTEC [Concomitant]
     Active Substance: CETIRIZINE HYDROCHLORIDE
  8. PREDNISONE [Concomitant]
     Active Substance: PREDNISONE
  9. BENADRYL [Concomitant]
     Active Substance: DIPHENHYDRAMINE HYDROCHLORIDE

REACTIONS (10)
  - Diarrhoea [Unknown]
  - Chest discomfort [Unknown]
  - Tinnitus [Unknown]
  - Sinus congestion [Unknown]
  - Visual impairment [Unknown]
  - Depressed mood [Unknown]
  - Eczema [Unknown]
  - Urticaria [Unknown]
  - Headache [Unknown]
  - Off label use [Unknown]
